FAERS Safety Report 5610739-8 (Version None)
Quarter: 2008Q1

REPORT INFORMATION
  Report Type: 
  Country: None (occurrence: None)
  Receive Date: 20080201
  Receipt Date: 20080124
  Transmission Date: 20080703
  Serious: Yes (Other)
  Sender: FDA-Public Use
  Company Number: PHBS2008ES00922

PATIENT
  Age: 59 Year
  Sex: Female

DRUGS (2)
  1. ARIMIDEX [Concomitant]
     Route: 065
  2. LETROZOLE [Suspect]
     Indication: BREAST CANCER
     Dosage: 2.5 MG/D
     Route: 048
     Dates: start: 20070401, end: 20070501

REACTIONS (6)
  - ARTHRALGIA [None]
  - DRUG INTOLERANCE [None]
  - MALAISE [None]
  - MYALGIA [None]
  - OSTEOARTHRITIS [None]
  - OSTEONECROSIS [None]
